FAERS Safety Report 5333946-0 (Version None)
Quarter: 2007Q2

REPORT INFORMATION
  Report Type: 
  Country: None (occurrence: None)
  Receive Date: 20070524
  Receipt Date: 20070521
  Transmission Date: 20071010
  Serious: Yes (Disabling, Other)
  Sender: FDA-Public Use
  Company Number: US-PFIZER INC-2006141098

PATIENT
  Sex: Male
  Weight: 72.6 kg

DRUGS (1)
  1. BEXTRA [Suspect]
     Indication: PAIN IN EXTREMITY
     Dosage: DAILY DOSE:20MG
     Route: 048
     Dates: start: 20031201, end: 20041001

REACTIONS (1)
  - CEREBROVASCULAR ACCIDENT [None]
